FAERS Safety Report 12012981 (Version 1)
Quarter: 2016Q1

REPORT INFORMATION
  Report Type: Spontaneous
  Country: IN (occurrence: IN)
  Receive Date: 20160205
  Receipt Date: 20160205
  Transmission Date: 20160526
  Serious: Yes (Hospitalization)
  Sender: FDA-Public Use
  Company Number: IN-ABBVIE-16P-078-1554606-00

PATIENT
  Age: 38 Year
  Sex: Female

DRUGS (1)
  1. SODIUM VALPROATE [Suspect]
     Active Substance: VALPROATE SODIUM
     Indication: BIPOLAR DISORDER
     Route: 065

REACTIONS (16)
  - Acanthosis [Unknown]
  - Eosinophilia [Unknown]
  - Transaminases increased [Unknown]
  - Biopsy skin abnormal [Unknown]
  - Lymphocyte morphology abnormal [Unknown]
  - Pruritus [Unknown]
  - Dermatitis psoriasiform [Unknown]
  - Rash [Unknown]
  - Dermatitis exfoliative [Unknown]
  - Hepatic function abnormal [Unknown]
  - CD4 lymphocytes increased [Unknown]
  - CD8 lymphocytes increased [Unknown]
  - Condition aggravated [Unknown]
  - Drug reaction with eosinophilia and systemic symptoms [Unknown]
  - Parakeratosis [Unknown]
  - Pyrexia [Unknown]
